FAERS Safety Report 6763231-1 (Version None)
Quarter: 2010Q2

REPORT INFORMATION
  Report Type: 
  Country: None (occurrence: None)
  Receive Date: 20100610
  Receipt Date: 20100527
  Transmission Date: 20101027
  Serious: Yes (Other)
  Sender: FDA-Public Use
  Company Number: US-ASTRAZENECA-2010SE26429

PATIENT
  Age: 21943 Day
  Sex: Male

DRUGS (4)
  1. SEROQUEL [Suspect]
     Route: 048
     Dates: start: 20050624
  2. GEODON [Concomitant]
     Indication: HALLUCINATION
     Dates: start: 20080101
  3. TRAZODONE HCL [Concomitant]
     Dates: start: 20050624
  4. NEURONTIN [Concomitant]
     Dates: start: 20050624

REACTIONS (18)
  - ARTHRALGIA [None]
  - ASTHMA [None]
  - BORDERLINE PERSONALITY DISORDER [None]
  - DEPRESSION [None]
  - DIABETES MELLITUS [None]
  - HEPATITIS C [None]
  - HYPERTENSION [None]
  - INTERVERTEBRAL DISC DEGENERATION [None]
  - LIVER DISORDER [None]
  - MOOD SWINGS [None]
  - NEOPLASM MALIGNANT [None]
  - PAIN [None]
  - PANIC ATTACK [None]
  - PARANOIA [None]
  - PSYCHOMOTOR HYPERACTIVITY [None]
  - SLEEP DISORDER [None]
  - SUBSTANCE ABUSE [None]
  - WEIGHT DECREASED [None]
